FAERS Safety Report 25365434 (Version 1)
Quarter: 2025Q2

REPORT INFORMATION
  Report Type: Spontaneous
  Country: FR (occurrence: FR)
  Receive Date: 20250527
  Receipt Date: 20250527
  Transmission Date: 20250717
  Serious: Yes (Life-Threatening, Hospitalization, Other)
  Sender: ELI LILLY AND COMPANY
  Company Number: FR-ELI_LILLY_AND_COMPANY-FR202505019121

PATIENT
  Age: 68 Year
  Sex: Male

DRUGS (1)
  1. TALTZ [Suspect]
     Active Substance: IXEKIZUMAB
     Indication: Product used for unknown indication
     Route: 065
     Dates: start: 20211021

REACTIONS (7)
  - Aortic aneurysm [Unknown]
  - Systemic inflammatory response syndrome [Unknown]
  - Listeria test positive [Unknown]
  - Aortitis [Unknown]
  - Septic embolus [Unknown]
  - Paraesthesia [Unknown]
  - Motor dysfunction [Unknown]

NARRATIVE: CASE EVENT DATE: 20241213
